FAERS Safety Report 4679351-1 (Version None)
Quarter: 2005Q2

REPORT INFORMATION
  Report Type: 
  Country: None (occurrence: None)
  Receive Date: 20050602
  Receipt Date: 20050518
  Transmission Date: 20051028
  Serious: Yes (Hospitalization)
  Sender: FDA-Public Use
  Company Number: US-GLAXOSMITHKLINE-A0559168A

PATIENT
  Sex: Female

DRUGS (4)
  1. PAROXETINE HCL [Suspect]
     Dosage: 10MG PER DAY
     Route: 048
     Dates: start: 20050405, end: 20050517
  2. PAXIL [Suspect]
     Dosage: 20MG PER DAY
     Route: 048
     Dates: start: 19960101
  3. PREMARIN [Concomitant]
  4. SYNTHROID [Concomitant]

REACTIONS (5)
  - DIZZINESS [None]
  - DRUG ADMINISTRATION ERROR [None]
  - JOINT DISLOCATION [None]
  - MALAISE [None]
  - STOMACH DISCOMFORT [None]
